FAERS Safety Report 19855000 (Version 1)
Quarter: 2021Q3

REPORT INFORMATION
  Report Type: Spontaneous
  Country: JP (occurrence: JP)
  Receive Date: 20210920
  Receipt Date: 20210920
  Transmission Date: 20211014
  Serious: Yes (Hospitalization, Other)
  Sender: FDA-Public Use
  Company Number: JP-SA-2021SA305716

PATIENT
  Age: 61 Year
  Sex: Female
  Weight: 41 kg

DRUGS (14)
  1. LACTULOSE. [Concomitant]
     Active Substance: LACTULOSE
     Indication: BOWEL MOVEMENT IRREGULARITY
     Dosage: UNK(65% PREPARATION 60 ML/DAY)
  2. DAIKENCHUTO [Concomitant]
     Active Substance: HERBALS
     Indication: BOWEL MOVEMENT IRREGULARITY
     Dosage: 7.5 G, QD
  3. FLUOROURACIL. [Suspect]
     Active Substance: FLUOROURACIL
     Dosage: 2400 MG(INFUSION, DAY 1?3)
  4. PANITUMUMAB RECOMBINANT [Concomitant]
     Active Substance: PANITUMUMAB
     Dosage: 6 MG/KG, QCY
  5. FLUOROURACIL. [Suspect]
     Active Substance: FLUOROURACIL
     Dosage: UNK(REDUCED TO 70%)
  6. FLUOROURACIL. [Suspect]
     Active Substance: FLUOROURACIL
     Dosage: 1700 MG(INFUSION)
  7. LUBIPROSTONE [Concomitant]
     Active Substance: LUBIPROSTONE
     Dosage: 24 UG, QD
  8. FLUOROURACIL. [Suspect]
     Active Substance: FLUOROURACIL
     Indication: RECTAL CANCER
     Dosage: 400 MG/M2, BIW(DAY 1)
     Route: 040
  9. FLUOROURACIL. [Suspect]
     Active Substance: FLUOROURACIL
     Dosage: 285 MG
     Route: 040
  10. SENNOSIDES. [Concomitant]
     Active Substance: SENNOSIDES
     Indication: BOWEL MOVEMENT IRREGULARITY
     Dosage: UNK(CALCIUM 12 MG/DAY)
  11. LUBIPROSTONE [Concomitant]
     Active Substance: LUBIPROSTONE
     Dosage: 48 UG, QD(INCREASING)
  12. OXALIPLATIN. [Suspect]
     Active Substance: OXALIPLATIN
     Indication: RECTAL CANCER
     Dosage: 85 MG/M2, BIW(DAY 1)
     Route: 041
  13. LEVOFOLINATE CALCIUM [Suspect]
     Active Substance: LEVOLEUCOVORIN CALCIUM
     Indication: RECTAL CANCER
     Dosage: 200 MG/M2, BIW(DAY 1)
     Route: 041
  14. CAPECITABINE. [Concomitant]
     Active Substance: CAPECITABINE
     Dosage: UNK

REACTIONS (6)
  - Hyperammonaemia [Recovering/Resolving]
  - Hepatitis C [Unknown]
  - Vomiting [Unknown]
  - Constipation [Unknown]
  - Aspartate aminotransferase increased [Unknown]
  - Alanine aminotransferase increased [Unknown]
